FAERS Safety Report 5760825-7 (Version None)
Quarter: 2008Q2

REPORT INFORMATION
  Report Type: 
  Country: None (occurrence: None)
  Receive Date: 20080606
  Receipt Date: 20080603
  Transmission Date: 20081010
  Serious: Yes (Other)
  Sender: FDA-Public Use
  Company Number: FR-AVENTIS-200714166FR

PATIENT
  Age: 57 Year
  Sex: Female

DRUGS (8)
  1. LASILIX                            /00032601/ [Suspect]
     Route: 048
  2. COPEGUS [Suspect]
     Route: 048
     Dates: start: 20070201
  3. PEGASYS [Suspect]
     Route: 058
     Dates: start: 20070201
  4. OMEPRAZOLE [Suspect]
     Route: 048
  5. DIFFU K [Suspect]
     Route: 048
  6. NEORAL [Suspect]
     Route: 048
     Dates: start: 20070101
  7. ISRADIPINE [Suspect]
     Route: 048
  8. COZAAR [Suspect]
     Route: 048

REACTIONS (1)
  - HEPATIC STEATOSIS [None]
